FAERS Safety Report 8251153-9 (Version None)
Quarter: 2012Q2

REPORT INFORMATION
  Report Type: 
  Country: None (occurrence: None)
  Receive Date: 20120402
  Receipt Date: 20120326
  Transmission Date: 20120825
  Serious: Yes (Hospitalization, Other)
  Sender: FDA-Public Use
  Company Number: CH-MERCK-1203USA03658

PATIENT
  Age: 58 Year
  Sex: Female

DRUGS (5)
  1. JANUMET [Suspect]
     Route: 048
     Dates: start: 20110508, end: 20110508
  2. ATACAND HCT [Suspect]
     Route: 048
     Dates: start: 20110508, end: 20110508
  3. DICLOFENAC SODIUM [Suspect]
     Route: 065
  4. ACETAMINOPHEN [Suspect]
     Route: 048
     Dates: start: 20110508, end: 20110508
  5. DIPYRONE TAB [Suspect]
     Route: 065
     Dates: start: 20110508, end: 20110508

REACTIONS (6)
  - SOMNOLENCE [None]
  - METABOLIC ACIDOSIS [None]
  - SUICIDE ATTEMPT [None]
  - OVERDOSE [None]
  - HEPATIC NECROSIS [None]
  - HYPERGLYCAEMIA [None]
